FAERS Safety Report 5110478-6 (Version None)
Quarter: 2006Q3

REPORT INFORMATION
  Report Type: 
  Country: None (occurrence: None)
  Receive Date: 20060918
  Receipt Date: 20060906
  Transmission Date: 20061208
  Serious: Yes (Life-Threatening, Hospitalization, Other)
  Sender: FDA-Public Use
  Company Number: HQWYE361611AUG06

PATIENT
  Age: 56 Year
  Sex: Female

DRUGS (10)
  1. RAPAMUNE [Suspect]
     Indication: RENAL TRANSPLANT
     Dosage: 2 MG 1X PER 1 DAY ORAL; SEE IMAGE
     Route: 048
     Dates: start: 20060107, end: 20060701
  2. RAPAMUNE [Suspect]
     Indication: RENAL TRANSPLANT
     Dosage: 2 MG 1X PER 1 DAY ORAL; SEE IMAGE
     Route: 048
     Dates: start: 20060701, end: 20060817
  3. PREDNISOLONE [Suspect]
     Indication: IMMUNOSUPPRESSANT DRUG THERAPY
     Dosage: 5 MG 1X PER 1 DAY ORAL
     Route: 048
     Dates: start: 20060107
  4. TACROLIMUS (TACROLIMUS, ) [Suspect]
     Dosage: 0.5 MG 2X PER 1 DAY ORAL
     Route: 048
     Dates: start: 20060107
  5. ALLOPURINOL [Concomitant]
  6. AMLODIPINE BESYLATE [Concomitant]
  7. PROPRANOLOL HYDROCHLORIDE [Concomitant]
  8. CLONAZEPAM [Concomitant]
  9. LANTUS [Concomitant]
  10. NOVORAPID (INSULIN ASPART) [Concomitant]

REACTIONS (8)
  - ACUTE RESPIRATORY DISTRESS SYNDROME [None]
  - BLOOD GLUCOSE DECREASED [None]
  - HAEMATOCRIT DECREASED [None]
  - HAEMOGLOBIN DECREASED [None]
  - HERPES VIRUS INFECTION [None]
  - KIDNEY TRANSPLANT REJECTION [None]
  - PLATELET COUNT DECREASED [None]
  - PSEUDOMONAS INFECTION [None]
